FAERS Safety Report 11932663 (Version 1)
Quarter: 2016Q1

REPORT INFORMATION
  Report Type: Spontaneous
  Country: US (occurrence: US)
  Receive Date: 20160120
  Receipt Date: 20160120
  Transmission Date: 20160526
  Serious: No
  Sender: FDA-Public Use
  Company Number: US-ALLERGAN-1422291US

PATIENT
  Age: 79 Year
  Sex: Female

DRUGS (2)
  1. VITAMINS [Concomitant]
     Active Substance: VITAMINS
  2. PRED FORTE [Suspect]
     Active Substance: PREDNISOLONE ACETATE
     Indication: POSTOPERATIVE CARE
     Dosage: 1 GTT, QID
     Route: 047
     Dates: start: 20141016, end: 20141018

REACTIONS (6)
  - Dizziness [Recovered/Resolved]
  - Photophobia [Recovered/Resolved]
  - Gait disturbance [Recovered/Resolved]
  - Nausea [Recovered/Resolved]
  - Vision blurred [Recovered/Resolved]
  - Halo vision [Recovered/Resolved]

NARRATIVE: CASE EVENT DATE: 20141017
